FAERS Safety Report 4421332-7 (Version None)
Quarter: 2004Q3

REPORT INFORMATION
  Report Type: 
  Country: None (occurrence: None)
  Receive Date: 20040804
  Receipt Date: 20040722
  Transmission Date: 20050211
  Serious: Yes (Hospitalization)
  Sender: FDA-Public Use
  Company Number: 2004050083

PATIENT
  Age: 76 Year
  Sex: Male

DRUGS (8)
  1. CARDULAR PP (DOXAZOSIN) [Suspect]
     Indication: HYPERTENSION
     Dosage: 8 MG (4 MG, 2 IN 1 IN 1 D), ORAL
     Route: 048
     Dates: end: 20031208
  2. CARBAMAZEPINE [Suspect]
     Indication: EPILEPSY
     Dosage: 200 MG (200 MG , 1 IN 1 D), ORAL
     Route: 048
     Dates: end: 20031208
  3. ALLOPURINOL [Concomitant]
  4. ACETYLSALICYLIC ACID SRT [Concomitant]
  5. ALFACALCIDOL (ALFACALCIDOL) [Concomitant]
  6. DIHYDRALAZINE SULFATE (DIHYDRALAZINE SULFATE) [Concomitant]
  7. SODIUM POLYSTYRENE SULFONATE (SODIUM POLYSTYRENE SULFONATE) [Concomitant]
  8. VALPROATE SODIUM [Concomitant]

REACTIONS (5)
  - ATRIOVENTRICULAR BLOCK [None]
  - BLOOD PRESSURE INCREASED [None]
  - BRADYCARDIA [None]
  - DRUG INTERACTION [None]
  - LOSS OF CONSCIOUSNESS [None]
